FAERS Safety Report 13229019 (Version 2)
Quarter: 2017Q2

REPORT INFORMATION
  Report Type: Report from Study
  Country: CA (occurrence: CA)
  Receive Date: 20170213
  Receipt Date: 20170410
  Transmission Date: 20170830
  Serious: Yes (Other)
  Sender: FDA-Public Use
  Company Number: CA-ROCHE-1891866

PATIENT
  Sex: Female

DRUGS (7)
  1. LYRICA [Concomitant]
     Active Substance: PREGABALIN
  2. DEXAMETHASONE. [Concomitant]
     Active Substance: DEXAMETHASONE
  3. VITAMIN E [Concomitant]
     Active Substance: .ALPHA.-TOCOPHEROL
  4. LOVENOX [Concomitant]
     Active Substance: ENOXAPARIN SODIUM
  5. HERCEPTIN [Suspect]
     Active Substance: TRASTUZUMAB
     Indication: BREAST CANCER
     Route: 065
     Dates: start: 20160208, end: 201608
  6. GRANIX [Concomitant]
     Active Substance: TBO-FILGRASTIM
  7. PANTOPRAZOLE [Concomitant]
     Active Substance: PANTOPRAZOLE

REACTIONS (4)
  - Radiation necrosis [Unknown]
  - Tooth fracture [Unknown]
  - Pain in extremity [Unknown]
  - Metastases to central nervous system [Unknown]
